FAERS Safety Report 9473064 (Version 2)
Quarter: 2013Q3

REPORT INFORMATION
  Report Type: Spontaneous
  Country: US (occurrence: US)
  Receive Date: 20130823
  Receipt Date: 20130823
  Transmission Date: 20140515
  Serious: Yes (Hospitalization, Other)
  Sender: FDA-Public Use
  Company Number: US-BRISTOL-MYERS SQUIBB COMPANY-17398058

PATIENT
  Age: 55 Year
  Sex: Female
  Weight: 61.4 kg

DRUGS (10)
  1. SPRYCEL [Suspect]
     Indication: CHRONIC MYELOID LEUKAEMIA
     Dosage: ON THERAPY FOR ALMOST 3 YRS
     Route: 048
     Dates: start: 20080219, end: 20110325
  2. ADVAIR DISKUS [Concomitant]
     Dosage: 2 DF= 2 PUFF
  3. ALDACTONE [Concomitant]
     Dosage: 25MG TAB, ?1DF=1TAB
     Route: 048
  4. HYDROCHLOROTHIAZIDE [Concomitant]
     Dosage: 12.5MG TAB AND ALSO 25MG TAB?1DF=25MG/12.5MG
     Route: 048
  5. CALCIUM [Concomitant]
     Dosage: 1DF=1TAB
  6. ESTER-C [Concomitant]
     Dosage: 1DF=1TAB
  7. FOLIC ACID [Concomitant]
     Dosage: 1DF=1TAB
     Route: 060
  8. POTASSIUM [Concomitant]
     Dosage: 1DF=1TAB
  9. PRENATAL VITAMINS [Concomitant]
     Dosage: 1DF=1TAB
  10. VITAMIN B COMPLEX [Concomitant]
     Dosage: 100?1DF=1TAB

REACTIONS (3)
  - Pleural effusion [Unknown]
  - Lung infiltration [Unknown]
  - Musculoskeletal pain [Unknown]
